FAERS Safety Report 9855213 (Version 1)
Quarter: 2014Q1

REPORT INFORMATION
  Report Type: Spontaneous
  Country: CN (occurrence: None)
  Receive Date: 20140127
  Receipt Date: 20140127
  Transmission Date: 20141002
  Serious: Yes (Hospitalization)
  Sender: FDA-Public Use
  Company Number: IMP_06952_2014

PATIENT
  Age: 41 Year
  Sex: Male

DRUGS (2)
  1. VALPROATE [Suspect]
     Indication: CONVULSION
     Route: 048
  2. VALPROATE [Suspect]
     Indication: PROPHYLAXIS
     Route: 048

REACTIONS (2)
  - Hypofibrinogenaemia [None]
  - Haemorrhage intracranial [None]
